FAERS Safety Report 19042842 (Version 2)
Quarter: 2021Q1

REPORT INFORMATION
  Report Type: Spontaneous
  Country: FR (occurrence: CA)
  Receive Date: 20210323
  Receipt Date: 20210323
  Transmission Date: 20210420
  Serious: Yes (Death, Other)
  Sender: FDA-Public Use
  Company Number: FR-SUN PHARMACEUTICAL INDUSTRIES LTD-2021R1-286964

PATIENT
  Age: 13 Year
  Sex: Male

DRUGS (8)
  1. DOMPERIDONE [Suspect]
     Active Substance: DOMPERIDONE
     Indication: QUADRIPLEGIA
  2. BOTOX [Suspect]
     Active Substance: ONABOTULINUMTOXINA
     Indication: QUADRIPLEGIA
  3. OMEPRAZOLE. [Suspect]
     Active Substance: OMEPRAZOLE
     Indication: QUADRIPLEGIA
  4. DOMPERIDONE [Suspect]
     Active Substance: DOMPERIDONE
     Indication: CEREBRAL PALSY
     Dosage: UNK
     Route: 065
  5. LACTULOSE. [Suspect]
     Active Substance: LACTULOSE
     Indication: QUADRIPLEGIA
  6. OMEPRAZOLE. [Suspect]
     Active Substance: OMEPRAZOLE
     Indication: CEREBRAL PALSY
     Dosage: UNK
     Route: 065
  7. BOTOX [Suspect]
     Active Substance: ONABOTULINUMTOXINA
     Indication: CEREBRAL PALSY
     Dosage: UNK
     Route: 065
  8. LACTULOSE. [Suspect]
     Active Substance: LACTULOSE
     Indication: CEREBRAL PALSY
     Dosage: UNK
     Route: 065

REACTIONS (3)
  - Dyspnoea [Fatal]
  - Asthenia [Fatal]
  - Aspiration [Fatal]
